FAERS Safety Report 13341141 (Version 1)
Quarter: 2017Q1

REPORT INFORMATION
  Report Type: Spontaneous
  Country: US (occurrence: US)
  Receive Date: 20170315
  Receipt Date: 20170315
  Transmission Date: 20170428
  Serious: Yes (Hospitalization)
  Sender: FDA-Public Use
  Company Number: None

PATIENT
  Age: 39 Year
  Sex: Male
  Weight: 74.7 kg

DRUGS (6)
  1. LEXAPRO [Concomitant]
     Active Substance: ESCITALOPRAM OXALATE
  2. ZANTAC [Concomitant]
     Active Substance: RANITIDINE HYDROCHLORIDE
  3. MAGNESIUM OXIDE. [Concomitant]
     Active Substance: MAGNESIUM OXIDE
  4. ERGOCALCIFEROL. [Concomitant]
     Active Substance: ERGOCALCIFEROL
  5. ESOMPERAZOLE [Suspect]
     Active Substance: ESOMEPRAZOLE SODIUM
     Indication: OESOPHAGITIS
     Route: 048
     Dates: start: 20170103, end: 20170115
  6. ESOMPERAZOLE [Suspect]
     Active Substance: ESOMEPRAZOLE SODIUM
     Indication: MALLORY-WEISS SYNDROME
     Route: 048
     Dates: start: 20170103, end: 20170115

REACTIONS (2)
  - Oesophagitis [None]
  - Mallory-Weiss syndrome [None]

NARRATIVE: CASE EVENT DATE: 20170107
